FAERS Safety Report 4747455-0 (Version None)
Quarter: 2005Q3

REPORT INFORMATION
  Report Type: 
  Country: None (occurrence: None)
  Receive Date: 20050815
  Receipt Date: 20050606
  Transmission Date: 20060218
  Serious: No
  Sender: FDA-Public Use
  Company Number: USA050496789

PATIENT
  Age: 75 Year
  Sex: Male

DRUGS (2)
  1. CIALIS [Suspect]
     Indication: ERECTILE DYSFUNCTION
     Dosage: 10 MG
     Dates: start: 20050101
  2. ASPIRIN [Concomitant]

REACTIONS (4)
  - CALCINOSIS [None]
  - CARDIOVASCULAR DISORDER [None]
  - DIZZINESS [None]
  - NASAL CONGESTION [None]
